FAERS Safety Report 6834019-8 (Version None)
Quarter: 2010Q3

REPORT INFORMATION
  Report Type: 
  Country: None (occurrence: None)
  Receive Date: 20100712
  Receipt Date: 20100701
  Transmission Date: 20110219
  Serious: Yes (Other)
  Sender: FDA-Public Use
  Company Number: US-AMGEN-QUU420580

PATIENT
  Sex: Female

DRUGS (8)
  1. NPLATE [Suspect]
     Indication: IDIOPATHIC THROMBOCYTOPENIC PURPURA
     Dates: start: 20090619, end: 20090818
  2. PREDNISONE [Concomitant]
  3. IMURAN [Concomitant]
  4. OMEPRAZOLE [Concomitant]
  5. LASIX [Concomitant]
  6. CALCIUM [Concomitant]
  7. VITAMIN D [Concomitant]
  8. PROGRAF [Concomitant]

REACTIONS (16)
  - ABDOMINAL DISTENSION [None]
  - ANAEMIA HAEMOLYTIC AUTOIMMUNE [None]
  - ASTHENIA [None]
  - BACK PAIN [None]
  - CHEST DISCOMFORT [None]
  - CUSHINGOID [None]
  - DEEP VEIN THROMBOSIS [None]
  - DYSPHAGIA [None]
  - DYSPHONIA [None]
  - DYSPNOEA [None]
  - MUSCULAR WEAKNESS [None]
  - OEDEMA PERIPHERAL [None]
  - OSTEOPENIA [None]
  - SUPRAPUBIC PAIN [None]
  - SWELLING FACE [None]
  - URINE COLOUR ABNORMAL [None]
